FAERS Safety Report 9844014 (Version 1)
Quarter: 2013Q4

REPORT INFORMATION
  Report Type: Spontaneous
  Country: US (occurrence: None)
  Receive Date: 20131223
  Receipt Date: 20131223
  Transmission Date: 20140711
  Serious: No
  Sender: FDA-Public Use
  Company Number: 1000048950

PATIENT
  Age: 72 Year
  Sex: Male

DRUGS (6)
  1. LINZESS (LINACLOTIDE) (145 MICROGRAM, CAPSULES) [Suspect]
     Indication: CONSTIPATION
     Route: 048
     Dates: start: 201309, end: 20130909
  2. HUMULIN (HUMAN MIXTARD) (HUMAN MIXTARD) [Concomitant]
  3. CELEBREX (CELECOXIB) (CELECOXIB) [Concomitant]
  4. LOSARTAN (LOSARTAN) [Concomitant]
  5. HYDROCHLOROTHIAZIDE (HYDROCHLOROTHIAZIDE) [Concomitant]
  6. DIAZEPAM (DIAZEPAM) [Concomitant]

REACTIONS (4)
  - Diarrhoea [None]
  - Insomnia [None]
  - Abdominal distension [None]
  - Abdominal pain upper [None]
